FAERS Safety Report 7530457-9 (Version None)
Quarter: 2011Q2

REPORT INFORMATION
  Report Type: 
  Country: None (occurrence: None)
  Receive Date: 20110607
  Receipt Date: 20110526
  Transmission Date: 20111010
  Serious: Yes (Other)
  Sender: FDA-Public Use
  Company Number: US-BAYER-2011-046737

PATIENT
  Age: 59 Year
  Sex: Male
  Weight: 91 kg

DRUGS (7)
  1. NEURONTIN [Concomitant]
  2. NEXIUM [Concomitant]
  3. CRESTOR [Concomitant]
  4. ATACAND [Concomitant]
  5. ALEVE (CAPLET) [Suspect]
     Dosage: 220 MG, ONCE, BOTTLE COUNT 40S
     Route: 048
     Dates: start: 20110525
  6. TOPROL-XL [Concomitant]
  7. ALEVE (CAPLET) [Suspect]
     Indication: PAIN
     Dosage: 220 MG, ONCE, BOTTLE COUNT 40S
     Route: 048
     Dates: start: 20110501, end: 20110501

REACTIONS (5)
  - FEELING JITTERY [None]
  - POOR QUALITY SLEEP [None]
  - WHEEZING [None]
  - DYSPHAGIA [None]
  - PHARYNGEAL OEDEMA [None]
